FAERS Safety Report 9330639 (Version 1)
Quarter: 2013Q2

REPORT INFORMATION
  Report Type: Spontaneous
  Country: US (occurrence: None)
  Receive Date: 20130604
  Receipt Date: 20130604
  Transmission Date: 20140414
  Serious: Yes (Hospitalization)
  Sender: FDA-Public Use
  Company Number: None

PATIENT
  Age: 70 Year
  Sex: Male

DRUGS (12)
  1. PHENYTOIN [Suspect]
     Indication: CONVULSION
     Route: 048
  2. ALENDRONATE VIT D [Concomitant]
  3. CAL CARBONATE [Concomitant]
  4. CLONAZEPAM [Concomitant]
  5. LEVETIRACETAM [Concomitant]
  6. MULTIVIT [Concomitant]
  7. OLANZAPINE [Concomitant]
  8. VALPRIOIC ACID [Concomitant]
  9. VALSARTAN [Concomitant]
  10. VENLAFAXINE [Concomitant]
  11. MIRALAX [Concomitant]
  12. NORCO [Concomitant]

REACTIONS (3)
  - Nausea [None]
  - Vomiting [None]
  - Toxicity to various agents [None]
